FAERS Safety Report 11798152 (Version 1)
Quarter: 2015Q4

REPORT INFORMATION
  Report Type: Spontaneous
  Country: GB (occurrence: GB)
  Receive Date: 20151203
  Receipt Date: 20151203
  Transmission Date: 20160305
  Serious: Yes (Life-Threatening, Hospitalization)
  Sender: FDA-Public Use
  Company Number: GB-JNJFOC-20151126206

PATIENT
  Age: 15 Year
  Sex: Male
  Weight: 70 kg

DRUGS (1)
  1. CONCERTA [Suspect]
     Active Substance: METHYLPHENIDATE HYDROCHLORIDE
     Indication: ATTENTION DEFICIT/HYPERACTIVITY DISORDER
     Dosage: 27 (UNSPECIFIED UNITS)
     Route: 048
     Dates: end: 20151113

REACTIONS (5)
  - Bundle branch block right [Unknown]
  - Left ventricular dysfunction [Recovered/Resolved]
  - Cardiac arrest [Recovered/Resolved with Sequelae]
  - Ventricular tachycardia [Unknown]
  - Cerebral disorder [Unknown]

NARRATIVE: CASE EVENT DATE: 20151113
